FAERS Safety Report 9474089 (Version 3)
Quarter: 2013Q4

REPORT INFORMATION
  Report Type: Spontaneous
  Country: US (occurrence: None)
  Receive Date: 20130820
  Receipt Date: 20131015
  Transmission Date: 20140711
  Serious: Yes (Other)
  Sender: FDA-Public Use
  Company Number: ACO_37986_2013

PATIENT
  Age: 56 Year
  Sex: Female
  Weight: 109.8 kg

DRUGS (17)
  1. AMPYRA [Suspect]
     Indication: MULTIPLE SCLEROSIS
     Dates: start: 201307, end: 20130805
  2. AMPYRA [Suspect]
     Indication: GAIT DISTURBANCE
     Dates: start: 201307, end: 20130805
  3. LANTUS (INSULIN GLARGINE) [Concomitant]
  4. ATORVASTATIN (ATORVASTATIN CALCIUM) [Concomitant]
  5. PLAVIX (CLOPIDOGREL SULFATE) [Concomitant]
  6. LISINOPRIL AND HYDROCHLOROTHIAZIDE (HYDROCHLOROTHIAZIDE, LISINOPRIL) [Concomitant]
  7. TYSABRI (NATALIZUMAB) [Concomitant]
  8. PROLAZINE (TODRALAZINE HYDROCHLORIDE) [Concomitant]
  9. CLONIDINE (CLONIDINE) [Concomitant]
  10. NEURONTIN (GABAPENTIN) [Concomitant]
  11. KEPPRA (LEVETIRACETAM) [Concomitant]
  12. PRISTIQ (DESVENLAFAXINE SUCCINATE) [Concomitant]
  13. ZOFRAN (ONDANSETRON HYDROCHLORIDE) [Concomitant]
  14. VITAMIN B 12 (CYANOCOBALAMIN) [Concomitant]
  15. LIPITOR (ATORVASTATIN CALCIUM) [Concomitant]
  16. PROPRANOLOL (PROPRANOLOL HYDROCHLORIDE) [Concomitant]
  17. TRAZODONE (TRAZODONE) [Concomitant]

REACTIONS (9)
  - Convulsion [None]
  - Nephrolithiasis [None]
  - Drug ineffective [None]
  - Inappropriate schedule of drug administration [None]
  - Nausea [None]
  - Vomiting [None]
  - Loss of consciousness [None]
  - Postictal state [None]
  - Incontinence [None]
